FAERS Safety Report 9056929 (Version 3)
Quarter: 2013Q2

REPORT INFORMATION
  Report Type: Spontaneous
  Country: US (occurrence: US)
  Receive Date: 20130131
  Receipt Date: 20130613
  Transmission Date: 20140414
  Serious: No
  Sender: FDA-Public Use
  Company Number: US-UCBSA-076736

PATIENT
  Age: 53 Year
  Sex: Female
  Weight: 45.35 kg

DRUGS (1)
  1. CIMZIA [Suspect]
     Indication: JUVENILE IDIOPATHIC ARTHRITIS
     Dates: start: 20120712

REACTIONS (3)
  - Skin lesion [Not Recovered/Not Resolved]
  - Head injury [Unknown]
  - Drug ineffective [Recovered/Resolved]
